FAERS Safety Report 25690363 (Version 1)
Quarter: 2025Q3

REPORT INFORMATION
  Report Type: Spontaneous
  Country: US (occurrence: None)
  Receive Date: 20250815
  Receipt Date: 20250815
  Transmission Date: 20251020
  Serious: Yes (Death)
  Sender: FDA-CTU
  Company Number: None

PATIENT
  Age: 82 Year
  Sex: Male
  Weight: 105.2 kg

DRUGS (3)
  1. PHENYLEPHRINE [Suspect]
     Active Substance: PHENYLEPHRINE
     Indication: Hypotension
     Route: 040
     Dates: start: 20250509, end: 20250509
  2. ETOMIDATE [Concomitant]
     Active Substance: ETOMIDATE
     Dates: start: 20250509, end: 20250509
  3. ROCURONIUM [Concomitant]
     Active Substance: ROCURONIUM BROMIDE
     Dates: start: 20250509, end: 20250509

REACTIONS (4)
  - Incorrect dose administered [None]
  - Drug monitoring procedure not performed [None]
  - Bradycardia [None]
  - Pulseless electrical activity [None]

NARRATIVE: CASE EVENT DATE: 20250509
